FAERS Safety Report 19238889 (Version 1)
Quarter: 2021Q2

REPORT INFORMATION
  Report Type: Spontaneous
  Country: DE (occurrence: DE)
  Receive Date: 20210510
  Receipt Date: 20210510
  Transmission Date: 20210717
  Serious: Yes (Other)
  Sender: FDA-Public Use
  Company Number: DE-ROCHE-2825517

PATIENT
  Age: 30 Year
  Sex: Female

DRUGS (4)
  1. OMALIZUMAB. [Suspect]
     Active Substance: OMALIZUMAB
     Indication: ASTHMA
     Route: 065
     Dates: start: 202101
  2. OMALIZUMAB. [Suspect]
     Active Substance: OMALIZUMAB
     Route: 065
     Dates: start: 201705, end: 201711
  3. BENRALIZUMAB. [Suspect]
     Active Substance: BENRALIZUMAB
     Indication: ASTHMA
     Route: 058
     Dates: start: 201808
  4. MEPOLIZUMAB [Suspect]
     Active Substance: MEPOLIZUMAB
     Indication: ASTHMA
     Route: 065
     Dates: start: 201712, end: 201807

REACTIONS (10)
  - Iron deficiency anaemia [Unknown]
  - Bacterial disease carrier [Unknown]
  - Asthma [Unknown]
  - Eosinophil count abnormal [Unknown]
  - Rib fracture [Unknown]
  - COVID-19 [Unknown]
  - Blood immunoglobulin E increased [Unknown]
  - Abdominal distension [Unknown]
  - Night sweats [Unknown]
  - Obstructive airways disorder [Unknown]

NARRATIVE: CASE EVENT DATE: 202010
